FAERS Safety Report 8672548 (Version 5)
Quarter: 2012Q4

REPORT INFORMATION
  Report Type: Report from Study
  Country: FR (occurrence: FR)
  Receive Date: 20120719
  Receipt Date: 20121127
  Transmission Date: 20130627
  Serious: Yes (Other)
  Sender: FDA-Public Use
  Company Number: FR-PFIZER INC-2012170100

PATIENT
  Age: 67 Year
  Sex: Female
  Weight: 72 kg

DRUGS (3)
  1. CRIZOTINIB [Suspect]
     Indication: LUNG CANCER
     Dosage: 250 mg, 2x/day
     Route: 048
     Dates: start: 20120613, end: 20120711
  2. PARACETAMOL [Concomitant]
     Indication: PAIN
     Dosage: 1000 mg, 1x/day
     Route: 048
  3. DICODIN [Concomitant]
     Dosage: twice daily

REACTIONS (1)
  - Hepatocellular injury [Recovered/Resolved]
